FAERS Safety Report 4901177-1 (Version None)
Quarter: 2006Q1

REPORT INFORMATION
  Report Type: 
  Country: None (occurrence: None)
  Receive Date: 20060201
  Receipt Date: 20060119
  Transmission Date: 20060701
  Serious: Yes (Life-Threatening)
  Sender: FDA-Public Use
  Company Number: 2006009658

PATIENT
  Age: 61 Year
  Sex: Female

DRUGS (2)
  1. ZITHROMAX [Suspect]
     Indication: DERMAL CYST
     Dosage: 500 MG, DAILY, ORAL
     Route: 048
     Dates: start: 20060115, end: 20060116
  2. RAMIPRIL [Concomitant]

REACTIONS (4)
  - CONFUSIONAL STATE [None]
  - HYPERTENSIVE CRISIS [None]
  - MEMORY IMPAIRMENT [None]
  - TACHYARRHYTHMIA [None]
